FAERS Safety Report 5399023-8 (Version None)
Quarter: 2007Q3

REPORT INFORMATION
  Report Type: 
  Country: None (occurrence: None)
  Receive Date: 20070727
  Receipt Date: 20070719
  Transmission Date: 20080115
  Serious: Yes (Other)
  Sender: FDA-Public Use
  Company Number: US-AMGEN-US225508

PATIENT
  Sex: Female
  Weight: 48.3 kg

DRUGS (8)
  1. ARANESP [Suspect]
     Indication: ANAEMIA OF MALIGNANT DISEASE
     Dates: start: 20050901, end: 20070601
  2. NEULASTA [Suspect]
     Indication: CHEMOTHERAPY
     Route: 058
     Dates: start: 20050915, end: 20061002
  3. NEUPOGEN [Suspect]
     Indication: CHEMOTHERAPY
     Route: 065
     Dates: end: 20070202
  4. CISPLATIN [Concomitant]
     Route: 065
  5. DECADRON [Concomitant]
     Route: 065
  6. ZOFRAN [Concomitant]
     Route: 065
  7. EMEND [Concomitant]
     Route: 065
  8. VITAMIN B-12 [Concomitant]
     Route: 065

REACTIONS (11)
  - ACUTE MYELOID LEUKAEMIA [None]
  - ARRHYTHMIA [None]
  - CHILLS [None]
  - DIARRHOEA [None]
  - EPISTAXIS [None]
  - FATIGUE [None]
  - MALAISE [None]
  - NAUSEA [None]
  - PYREXIA [None]
  - THERAPEUTIC RESPONSE DECREASED [None]
  - TREMOR [None]
